FAERS Safety Report 6035732-5 (Version None)
Quarter: 2009Q1

REPORT INFORMATION
  Report Type: 
  Country: None (occurrence: None)
  Receive Date: 20090112
  Receipt Date: 20090112
  Transmission Date: 20090719
  Serious: Yes (Hospitalization, Disabling)
  Sender: FDA-Public Use
  Company Number: None

PATIENT
  Age: 85 Year
  Sex: Male

DRUGS (7)
  1. CO-TRIMOXAZOLE 800MG/160MG [Suspect]
     Indication: URINARY TRACT INFECTION
     Dosage: 1 TABLET TWICE DAILY PO
     Route: 048
     Dates: start: 20081120, end: 20081124
  2. MAXZIDE [Concomitant]
  3. AMITRIPTYLINE HCL [Concomitant]
  4. SIMVASTATIN [Concomitant]
  5. GUAIFENESIN LA [Concomitant]
  6. PERCOCET [Concomitant]
  7. ALFUZOSIN HCL [Concomitant]

REACTIONS (1)
  - STEVENS-JOHNSON SYNDROME [None]
